FAERS Safety Report 20725049 (Version 1)
Quarter: 2022Q2

REPORT INFORMATION
  Report Type: Spontaneous
  Country: US (occurrence: US)
  Receive Date: 20220419
  Receipt Date: 20220419
  Transmission Date: 20220720
  Serious: Yes (Life-Threatening, Hospitalization, Other)
  Sender: FDA-Public Use
  Company Number: US-PFIZER INC-202200532417

PATIENT
  Age: 4 Year
  Sex: Female

DRUGS (7)
  1. MITOXANTRONE HYDROCHLORIDE [Suspect]
     Active Substance: MITOXANTRONE HYDROCHLORIDE
     Indication: Acute myeloid leukaemia
     Dosage: UNK, CYCLIC (THREE CYCLES)
     Route: 040
  2. DAUNORUBICIN [Suspect]
     Active Substance: DAUNORUBICIN
     Indication: Acute myeloid leukaemia
     Dosage: UNK, CYCLIC (TWO CYCLES)
     Route: 040
  3. CYTARABINE [Concomitant]
     Active Substance: CYTARABINE
     Indication: Acute myeloid leukaemia
     Dosage: UNK, CYCLIC (TWO CYCLES)
  4. CYTARABINE [Concomitant]
     Active Substance: CYTARABINE
     Dosage: UNK, CYCLIC (THREE CYCLES)
  5. ETOPOSIDE [Concomitant]
     Active Substance: ETOPOSIDE
     Indication: Acute myeloid leukaemia
     Dosage: UNK, CYCLIC (TWO CYCLES)
  6. ETOPOSIDE [Concomitant]
     Active Substance: ETOPOSIDE
     Dosage: UNK, CYCLIC (THREE CYCLES)
  7. ASPARAGINASE [Concomitant]
     Active Substance: ASPARAGINASE
     Indication: Acute myeloid leukaemia
     Dosage: UNK, CYCLIC (THREE CYCLES)

REACTIONS (1)
  - Cardiomyopathy acute [Recovering/Resolving]
